FAERS Safety Report 11544735 (Version 2)
Quarter: 2015Q4

REPORT INFORMATION
  Report Type: Spontaneous
  Country: TR (occurrence: TR)
  Receive Date: 20150924
  Receipt Date: 20151013
  Transmission Date: 20160304
  Serious: Yes (Life-Threatening, Hospitalization)
  Sender: FDA-Public Use
  Company Number: TR-SUN PHARMACEUTICAL INDUSTRIES LTD-2015RR-103377

PATIENT

DRUGS (8)
  1. VALPROIC ACID. [Suspect]
     Active Substance: VALPROIC ACID
     Indication: BIPOLAR DISORDER
     Dosage: 1000 MG, DAILY
     Route: 065
  2. OLANZAPINE. [Concomitant]
     Active Substance: OLANZAPINE
     Indication: BIPOLAR DISORDER
     Dosage: 5 MG, DAILY
     Route: 065
  3. QUETIAPINE [Concomitant]
     Active Substance: QUETIAPINE
     Indication: BIPOLAR DISORDER
     Dosage: 50 MG, DAILY
     Route: 065
  4. SERTRALINE [Concomitant]
     Active Substance: SERTRALINE HYDROCHLORIDE
     Indication: BIPOLAR DISORDER
     Dosage: 50 MG, DAILY
     Route: 065
  5. BIPERIDEN [Concomitant]
     Active Substance: BIPERIDEN
     Indication: BIPOLAR DISORDER
     Dosage: UNK
     Route: 065
  6. HALOPERIDOL. [Concomitant]
     Active Substance: HALOPERIDOL
     Indication: BIPOLAR DISORDER
     Dosage: UNK
     Route: 065
  7. RISPERIDONE. [Concomitant]
     Active Substance: RISPERIDONE
     Indication: BIPOLAR DISORDER
     Dosage: 2 MG, DAILY
     Route: 065
  8. LAMOTRIGINE. [Interacting]
     Active Substance: LAMOTRIGINE
     Indication: BIPOLAR DISORDER
     Dosage: 25 MG, DAILY
     Route: 065

REACTIONS (12)
  - Acinetobacter infection [Recovered/Resolved]
  - Onychomadesis [Not Recovered/Not Resolved]
  - Drug interaction [Unknown]
  - Tachycardia [Recovered/Resolved]
  - Hallucination [Unknown]
  - Post inflammatory pigmentation change [Not Recovered/Not Resolved]
  - Dehydration [Recovered/Resolved]
  - Withdrawal syndrome [Unknown]
  - Delirium [Unknown]
  - Toxic epidermal necrolysis [Recovered/Resolved with Sequelae]
  - Electrolyte imbalance [Recovered/Resolved]
  - Blepharophimosis [Recovering/Resolving]
